FAERS Safety Report 11872643 (Version 2)
Quarter: 2020Q1

REPORT INFORMATION
  Report Type: Spontaneous
  Country: GB (occurrence: GB)
  Receive Date: 20151228
  Receipt Date: 20200128
  Transmission Date: 20200409
  Serious: Yes (Disabling)
  Sender: FDA-Public Use
  Company Number: GB-JNJFOC-20151218188

PATIENT
  Age: 22 Year
  Sex: Male
  Weight: 106 kg

DRUGS (2)
  1. CIALIS [Concomitant]
     Active Substance: TADALAFIL
     Route: 065
  2. RISPERIDONE. [Suspect]
     Active Substance: RISPERIDONE
     Indication: PSYCHOTIC DISORDER
     Dosage: 4.0 DOSE
     Route: 048
     Dates: start: 20140301, end: 20151001

REACTIONS (3)
  - Gynaecomastia [Not Recovered/Not Resolved]
  - Depression [Not Recovered/Not Resolved]
  - Penile size reduced [Not Recovered/Not Resolved]

NARRATIVE: CASE EVENT DATE: 20140401
